FAERS Safety Report 6370997-1 (Version None)
Quarter: 2009Q3

REPORT INFORMATION
  Report Type: 
  Country: None (occurrence: None)
  Receive Date: 20090923
  Receipt Date: 20090909
  Transmission Date: 20100115
  Serious: Yes (Hospitalization)
  Sender: FDA-Public Use
  Company Number: JP-PFIZER INC-2009268359

PATIENT
  Age: 76 Year

DRUGS (12)
  1. CELECOX [Suspect]
     Indication: OSTEOARTHRITIS
     Dosage: 100 MG, 2X/DAY
     Route: 048
     Dates: start: 20090824, end: 20090901
  2. GASTER [Concomitant]
     Indication: GASTRITIS
     Dosage: 20 MG, UNK
     Dates: start: 19990901
  3. EUGLUCON [Concomitant]
     Indication: DIABETES MELLITUS
     Dosage: UNK
     Route: 048
     Dates: start: 19990901
  4. NORVASC [Concomitant]
     Indication: PRINZMETAL ANGINA
     Dosage: UNK
     Route: 048
     Dates: start: 19990901
  5. ASPIRIN [Concomitant]
     Indication: CEREBRAL INFARCTION
     Dosage: UNK
     Route: 048
     Dates: start: 19990901
  6. HALFDIGOXIN [Concomitant]
     Indication: ATRIAL FIBRILLATION
     Dosage: UNK
     Route: 048
     Dates: start: 19990901
  7. NU LOTAN [Concomitant]
     Indication: PRINZMETAL ANGINA
     Dosage: UNK
     Route: 048
     Dates: start: 19990901
  8. FRANDOL [Concomitant]
     Indication: PRINZMETAL ANGINA
     Dosage: UNK
     Route: 048
     Dates: start: 19990901
  9. SIGMART [Concomitant]
     Indication: PRINZMETAL ANGINA
     Dosage: UNK
     Route: 048
     Dates: start: 19990901
  10. LASIX [Concomitant]
     Indication: CARDIAC FAILURE CHRONIC
     Dosage: UNK
     Route: 048
     Dates: start: 19990901
  11. BASEN [Concomitant]
     Indication: DIABETES MELLITUS
     Dosage: UNK
     Dates: start: 19990901
  12. MUCOSTA [Concomitant]
     Indication: OSTEOARTHRITIS
     Dosage: UNK
     Dates: start: 20090824

REACTIONS (1)
  - CARDIAC FAILURE [None]
